FAERS Safety Report 12429543 (Version 1)
Quarter: 2016Q2

REPORT INFORMATION
  Report Type: Other
  Country: FR (occurrence: FR)
  Receive Date: 20160602
  Receipt Date: 20160602
  Transmission Date: 20160815
  Serious: Yes (Hospitalization)
  Sender: FDA-Public Use
  Company Number: FR-MYLANLABS-2016M1022499

PATIENT

DRUGS (4)
  1. EPIRUBICINE MYLAN 2 MG/ML, SOLUTION POUR PERFUSION [Suspect]
     Active Substance: EPIRUBICIN
     Indication: BREAST CANCER
     Dosage: UNK
     Route: 042
     Dates: start: 201511
  2. DOCETAXEL ACCORD [Suspect]
     Active Substance: DOCETAXEL
     Dosage: 130 MG, MONTHLY
     Route: 042
     Dates: start: 20160406, end: 2016
  3. EPIRUBICINE MYLAN 2 MG/ML, SOLUTION POUR PERFUSION [Suspect]
     Active Substance: EPIRUBICIN
     Dosage: 128 MG, MONTHLY
     Route: 042
     Dates: start: 20160406, end: 2016
  4. DOCETAXEL ACCORD [Suspect]
     Active Substance: DOCETAXEL
     Indication: BREAST CANCER
     Dosage: UNK
     Route: 042
     Dates: start: 201511

REACTIONS (1)
  - Left ventricular dysfunction [Unknown]

NARRATIVE: CASE EVENT DATE: 20160406
